FAERS Safety Report 4888583-9 (Version None)
Quarter: 2005Q4

REPORT INFORMATION
  Report Type: 
  Country: None (occurrence: None)
  Receive Date: 20051215
  Receipt Date: 20050418
  Transmission Date: 20060501
  Serious: Yes (Other)
  Sender: FDA-Public Use
  Company Number: 2004240270US

PATIENT
  Age: 79 Year
  Sex: Female
  Weight: 56.6996 kg

DRUGS (7)
  1. BEXTRA [Suspect]
     Indication: PAIN
     Dosage: 10 MG (10 MG, 1 IN 1D)
     Dates: start: 20040520, end: 20040712
  2. HYDROCHLOROTHIAZIDE [Concomitant]
  3. RABEPRAZOLE SODIUM [Concomitant]
  4. ESCITALOPRAM (ESCITALOPRAM) [Concomitant]
  5. LORAZEPAM [Concomitant]
  6. ALENDRONATE SODIUM [Concomitant]
  7. POTASSIUM CHLORIDE [Concomitant]

REACTIONS (8)
  - ABDOMINAL TENDERNESS [None]
  - ANOREXIA [None]
  - FAECES DISCOLOURED [None]
  - GASTRIC MUCOSAL LESION [None]
  - GASTRITIS [None]
  - MELAENA [None]
  - NAUSEA [None]
  - RENAL ANEURYSM [None]
